FAERS Safety Report 17391987 (Version 1)
Quarter: 2020Q1

REPORT INFORMATION
  Report Type: Spontaneous
  Country: CZ (occurrence: CZ)
  Receive Date: 20200207
  Receipt Date: 20200207
  Transmission Date: 20200409
  Serious: Yes (Other)
  Sender: FDA-Public Use
  Company Number: CZ-ACCORD-171873

PATIENT
  Age: 30 Year
  Sex: Male

DRUGS (4)
  1. CLONAZEPAM. [Suspect]
     Active Substance: CLONAZEPAM
     Indication: IDIOPATHIC GENERALISED EPILEPSY
     Dosage: UNK 2-3 MG / DAILY
  2. VALPROIC ACID. [Suspect]
     Active Substance: VALPROIC ACID
     Indication: IDIOPATHIC GENERALISED EPILEPSY
     Dosage: 2000 MG PER DAY
  3. LAMOTRIGINE. [Suspect]
     Active Substance: LAMOTRIGINE
     Indication: IDIOPATHIC GENERALISED EPILEPSY
     Dosage: 100 MG PER DAY
  4. CARBAMAZEPINE. [Suspect]
     Active Substance: CARBAMAZEPINE
     Indication: IDIOPATHIC GENERALISED EPILEPSY
     Dosage: 600 MG PER DAY

REACTIONS (10)
  - Insomnia [Recovered/Resolved]
  - Drug ineffective [Unknown]
  - Loss of personal independence in daily activities [Recovered/Resolved]
  - Joint injury [Recovered/Resolved]
  - Osteopenia [Recovered/Resolved]
  - Alopecia [Recovered/Resolved]
  - Weight increased [Recovered/Resolved]
  - Depression [Recovered/Resolved]
  - Tremor [Recovered/Resolved]
  - Thermal burn [Recovered/Resolved]
